FAERS Safety Report 20263656 (Version 10)
Quarter: 2023Q1

REPORT INFORMATION
  Report Type: Spontaneous
  Country: CA (occurrence: CA)
  Receive Date: 20211231
  Receipt Date: 20230331
  Transmission Date: 20230418
  Serious: Yes (Hospitalization, Other)
  Sender: FDA-Public Use
  Company Number: CA-CELLTRION INC.-2021CA010479

PATIENT

DRUGS (18)
  1. INFLECTRA [Suspect]
     Active Substance: INFLIXIMAB-DYYB
     Indication: Ankylosing spondylitis
     Dosage: 400 MG, INDUCTION AT 0, 2, 6 WEEK THEN EVERY 8 WEEKS
     Route: 042
     Dates: start: 20210727
  2. INFLECTRA [Suspect]
     Active Substance: INFLIXIMAB-DYYB
     Dosage: 400 MG, INDUCTION AT 0, 2, 6 WEEK THEN EVERY 8 WEEKS
     Route: 042
     Dates: start: 20210812
  3. INFLECTRA [Suspect]
     Active Substance: INFLIXIMAB-DYYB
     Dosage: 400 MG, INDUCTION AT 0, 2, 6 WEEK THEN EVERY 8 WEEKS
     Route: 042
     Dates: start: 20211105
  4. INFLECTRA [Suspect]
     Active Substance: INFLIXIMAB-DYYB
     Dosage: 400 MG, INDUCTION AT 0, 2, 6 WEEK THEN EVERY 8 WEEKS
     Route: 042
     Dates: start: 20220128
  5. INFLECTRA [Suspect]
     Active Substance: INFLIXIMAB-DYYB
     Dosage: 400 MG, INDUCTION AT 0, 2, 6 WEEK THEN EVERY 8 WEEKS
     Route: 042
     Dates: start: 20220128
  6. INFLECTRA [Suspect]
     Active Substance: INFLIXIMAB-DYYB
     Dosage: 400 MG EVERY 6 WEEKS
     Route: 042
     Dates: start: 20220520
  7. INFLECTRA [Suspect]
     Active Substance: INFLIXIMAB-DYYB
     Dosage: 400 MG EVERY 6 WEEKS
     Route: 042
     Dates: start: 20220704
  8. INFLECTRA [Suspect]
     Active Substance: INFLIXIMAB-DYYB
     Dosage: 400 MG EVERY 6 WEEKS
     Route: 042
     Dates: start: 20220815
  9. INFLECTRA [Suspect]
     Active Substance: INFLIXIMAB-DYYB
     Dosage: 400 MG EVERY 6 WEEKS (BUT RECEIVED 31 WEEKS AND 3 DAYS AFTER LAST INFUSION)
     Route: 042
     Dates: start: 20230323
  10. AMITRIPTYLINE [Concomitant]
     Active Substance: AMITRIPTYLINE
     Dosage: 50 MG, 1X/DAY HS
     Route: 065
  11. ATORVASTATIN [Concomitant]
     Active Substance: ATORVASTATIN
     Dosage: 40 MG, 1X/DAY
     Route: 048
  12. CIMZIA [Concomitant]
     Active Substance: CERTOLIZUMAB PEGOL
     Dosage: 1 DF DOSAGE INFO NOT PROVIDED
     Route: 065
  13. GLICLAZIDE [Concomitant]
     Active Substance: GLICLAZIDE
     Dosage: 10 MG, 2X/DAY
     Route: 048
  14. NAPROXEN [Concomitant]
     Active Substance: NAPROXEN
     Dosage: UNK
  15. NAPROXEN [Concomitant]
     Active Substance: NAPROXEN
     Dosage: 500 MG
  16. OZEMPIC [Concomitant]
     Active Substance: SEMAGLUTIDE
     Dosage: 1 DF, WEEKLY
     Route: 065
  17. RABEPRAZOLE [Concomitant]
     Active Substance: RABEPRAZOLE
     Dosage: 30 MG, 1X/DAY
     Route: 048
  18. RAMIPRIL [Concomitant]
     Active Substance: RAMIPRIL
     Dosage: 2.5 MG, 1X/DAY
     Route: 065

REACTIONS (10)
  - Abdominal hernia [Recovered/Resolved]
  - Internal haemorrhage [Recovered/Resolved]
  - Condition aggravated [Unknown]
  - Blood pressure increased [Unknown]
  - Fatigue [Unknown]
  - Off label use [Unknown]
  - Intentional product use issue [Unknown]
  - Product dose omission issue [Unknown]
  - Inappropriate schedule of product administration [Unknown]
  - Off label use [Unknown]

NARRATIVE: CASE EVENT DATE: 20210812
